FAERS Safety Report 25533547 (Version 10)
Quarter: 2025Q4

REPORT INFORMATION
  Report Type: Spontaneous
  Country: US (occurrence: US)
  Receive Date: 20250709
  Receipt Date: 20251114
  Transmission Date: 20260117
  Serious: No
  Sender: ASTELLAS
  Company Number: US-ASTELLAS-2025-AER-032405

PATIENT
  Age: 65 Year
  Sex: Male

DRUGS (3)
  1. PADCEV [Suspect]
     Active Substance: ENFORTUMAB VEDOTIN-EJFV
     Indication: Product used for unknown indication
     Dosage: 50MG IV EVERY 7 DAYS. (OFF LABEL DOSE PADCEV DOSED AT 0.7082MG/KG)
     Route: 042
  2. PADCEV [Suspect]
     Active Substance: ENFORTUMAB VEDOTIN-EJFV
     Route: 042
  3. PADCEV [Suspect]
     Active Substance: ENFORTUMAB VEDOTIN-EJFV
     Dosage: (DAY 1)
     Route: 042
     Dates: start: 20251003, end: 20251003

REACTIONS (3)
  - Off label use [Unknown]
  - Off label use [Unknown]
  - Underdose [Unknown]
